FAERS Safety Report 6617558-4 (Version None)
Quarter: 2010Q1

REPORT INFORMATION
  Report Type: 
  Country: None (occurrence: None)
  Receive Date: 20100308
  Receipt Date: 20100301
  Transmission Date: 20100710
  Serious: Yes (Hospitalization)
  Sender: FDA-Public Use
  Company Number: US-KINGPHARMUSA00001-K201000237

PATIENT
  Age: 37 Year
  Sex: Male

DRUGS (1)
  1. SEPTRA [Suspect]
     Indication: URINARY TRACT INFECTION
     Dosage: 1 DF, BID (EVERY 12 HOURS)

REACTIONS (16)
  - ALANINE AMINOTRANSFERASE INCREASED [None]
  - ASPARTATE AMINOTRANSFERASE INCREASED [None]
  - ASTHENIA [None]
  - DIZZINESS [None]
  - DRUG HYPERSENSITIVITY [None]
  - DYSARTHRIA [None]
  - HAEMOLYTIC ANAEMIA [None]
  - HEADACHE [None]
  - HEPATITIS [None]
  - HEPATOMEGALY [None]
  - MENINGITIS ASEPTIC [None]
  - NUCHAL RIGIDITY [None]
  - ORTHOSTATIC HYPOTENSION [None]
  - PRURITUS GENERALISED [None]
  - PYREXIA [None]
  - RASH MACULO-PAPULAR [None]
